FAERS Safety Report 5996975-X (Version None)
Quarter: 2008Q4

REPORT INFORMATION
  Report Type: 
  Country: None (occurrence: None)
  Receive Date: 20081212
  Receipt Date: 20080613
  Transmission Date: 20090506
  Serious: No
  Sender: FDA-Public Use
  Company Number: US-AMGEN-KDL287881

PATIENT
  Age: 11 Year
  Sex: Female

DRUGS (3)
  1. ENBREL [Suspect]
     Indication: JUVENILE ARTHRITIS
  2. CORTICOSTEROIDS [Concomitant]
  3. PLAQUENIL [Concomitant]

REACTIONS (1)
  - JUVENILE ARTHRITIS [None]
